FAERS Safety Report 13601262 (Version 1)
Quarter: 2017Q2

REPORT INFORMATION
  Report Type: Spontaneous
  Country: US (occurrence: US)
  Receive Date: 20170601
  Receipt Date: 20170601
  Transmission Date: 20170830
  Serious: Yes (Other)
  Sender: FDA-Public Use
  Company Number: None

PATIENT
  Age: 45 Year
  Sex: Male
  Weight: 157.08 kg

DRUGS (1)
  1. SUBOXONE [Suspect]
     Active Substance: BUPRENORPHINE HYDROCHLORIDE\NALOXONE HYDROCHLORIDE
     Indication: DRUG USE DISORDER
     Route: 060
     Dates: start: 20170427, end: 20170518

REACTIONS (5)
  - Nausea [None]
  - Hyperhidrosis [None]
  - Dysphagia [None]
  - Dysgeusia [None]
  - Muscle spasms [None]

NARRATIVE: CASE EVENT DATE: 20170427
